FAERS Safety Report 19134404 (Version 1)
Quarter: 2021Q2

REPORT INFORMATION
  Report Type: Report from Study
  Country: RU (occurrence: RU)
  Receive Date: 20210414
  Receipt Date: 20210414
  Transmission Date: 20210717
  Serious: Yes (Other)
  Sender: FDA-Public Use
  Company Number: RU-INCYTE CORPORATION-2020IN013588

PATIENT

DRUGS (9)
  1. CURANTYL [Suspect]
     Active Substance: DIPYRIDAMOLE
     Indication: MYELOPROLIFERATIVE NEOPLASM
     Dosage: 25 MG, TID
     Route: 065
     Dates: start: 201308
  2. HYDROXYCARBAMIDE [Suspect]
     Active Substance: HYDROXYUREA
     Indication: POLYCYTHAEMIA VERA
     Dosage: UNK UNK, QD (1000 TO 1500 MG)
     Route: 065
     Dates: start: 201901
  3. JAKAVI [Suspect]
     Active Substance: RUXOLITINIB
     Dosage: 30 MG, QD
     Route: 065
     Dates: start: 201907
  4. JAKAVI [Suspect]
     Active Substance: RUXOLITINIB
     Indication: MYELOPROLIFERATIVE NEOPLASM
     Dosage: 15 MG, BID
     Route: 065
     Dates: start: 20190123
  5. HEPARIN [Concomitant]
     Active Substance: HEPARIN SODIUM
     Indication: PRODUCT USED FOR UNKNOWN INDICATION
     Dosage: UNK
     Route: 065
  6. CURANTYL [Suspect]
     Active Substance: DIPYRIDAMOLE
     Indication: POLYCYTHAEMIA VERA
  7. JAKAVI [Suspect]
     Active Substance: RUXOLITINIB
     Dosage: 30 MG, QD
     Route: 065
  8. HYDROXYCARBAMIDE [Suspect]
     Active Substance: HYDROXYUREA
     Indication: MYELOPROLIFERATIVE NEOPLASM
     Dosage: UNK, QD (1000 TO 1500 MG)
     Route: 065
     Dates: start: 201308
  9. HYDROXYCARBAMIDE [Suspect]
     Active Substance: HYDROXYUREA
     Dosage: 1000 MG, QD
     Route: 065

REACTIONS (21)
  - Hypermetabolism [Unknown]
  - Lymphocyte percentage decreased [Unknown]
  - Gastritis [Unknown]
  - Blood lactate dehydrogenase decreased [Unknown]
  - Vasodilatation [Unknown]
  - Basophil percentage increased [Unknown]
  - Eosinophil percentage increased [Unknown]
  - Myalgia [Unknown]
  - Polycythaemia vera [Unknown]
  - Malignant neoplasm progression [Unknown]
  - Haemoglobin increased [Unknown]
  - Diarrhoea [Unknown]
  - Red blood cell sedimentation rate increased [Unknown]
  - Lymphocyte percentage increased [Unknown]
  - Nephrocalcinosis [Unknown]
  - Lymphadenopathy [Unknown]
  - Blood erythropoietin decreased [Unknown]
  - Splenomegaly [Unknown]
  - Renal cyst [Unknown]
  - Back pain [Unknown]
  - Portal vein dilatation [Unknown]

NARRATIVE: CASE EVENT DATE: 20151214
